FAERS Safety Report 6390462-5 (Version None)
Quarter: 2009Q4

REPORT INFORMATION
  Report Type: 
  Country: None (occurrence: None)
  Receive Date: 20091006
  Receipt Date: 20090922
  Transmission Date: 20100525
  Serious: Yes (Other)
  Sender: FDA-Public Use
  Company Number: CL-PFIZER INC-2009264994

PATIENT
  Age: 53 Year

DRUGS (4)
  1. AROMASIN [Suspect]
     Dosage: 25 MG, 1X/DAY
     Dates: start: 20080501
  2. ZOMETA [Concomitant]
     Dosage: UNK
  3. TRAMADOL HYDROCHLORIDE [Concomitant]
  4. ACETAMINOPHEN [Concomitant]

REACTIONS (3)
  - ARTHRALGIA [None]
  - NEURITIS [None]
  - PAIN IN EXTREMITY [None]
